FAERS Safety Report 9314272 (Version 1)
Quarter: 2013Q2

REPORT INFORMATION
  Report Type: Report from Study
  Country: DE (occurrence: DE)
  Receive Date: 20130529
  Receipt Date: 20130529
  Transmission Date: 20140414
  Serious: Yes (Hospitalization)
  Sender: FDA-Public Use
  Company Number: PHHO2011DE04539

PATIENT
  Age: 70 Year
  Sex: Female

DRUGS (7)
  1. CERTICAN [Suspect]
     Indication: RENAL TRANSPLANT
     Dosage: 3 MG, BID
     Route: 048
     Dates: start: 20101202, end: 20110622
  2. SIMULECT / CHI 621A / SDZ CHI 621 [Suspect]
     Indication: RENAL TRANSPLANT
     Dosage: 20 MG, UNK
     Dates: start: 20101002, end: 20101229
  3. SIMULECT / CHI 621A / SDZ CHI 621 [Suspect]
     Dosage: 200 MG/DAY
     Dates: start: 20110622
  4. MYFORTIC [Suspect]
     Indication: RENAL TRANSPLANT
     Dosage: 360 MG, BID
     Route: 048
     Dates: start: 20101229, end: 20110306
  5. MYFORTIC [Suspect]
     Dosage: 180 MG, PER DAY
     Route: 048
     Dates: start: 20110311
  6. MYFORTIC [Suspect]
     Dosage: 360 MG/DAY
     Route: 048
     Dates: start: 20110629
  7. DECORTIN [Suspect]
     Indication: RENAL TRANSPLANT
     Dosage: 5 MG, /DAY
     Route: 048
     Dates: start: 20101001

REACTIONS (3)
  - Cytomegalovirus colitis [Recovered/Resolved]
  - Diarrhoea [Recovering/Resolving]
  - Pneumonitis [Recovered/Resolved]
